FAERS Safety Report 25779560 (Version 3)
Quarter: 2025Q3

REPORT INFORMATION
  Report Type: Spontaneous
  Country: US (occurrence: US)
  Receive Date: 20250909
  Receipt Date: 20250924
  Transmission Date: 20251021
  Serious: Yes (Other)
  Sender: TEVA
  Company Number: US-TEVA-VS-3369938

PATIENT
  Age: 39 Year
  Sex: Female

DRUGS (7)
  1. CLONIDINE [Suspect]
     Active Substance: CLONIDINE
     Indication: Pain
     Route: 037
  2. FENTANYL [Suspect]
     Active Substance: FENTANYL
     Indication: Drug abuse
     Route: 042
  3. FENTANYL [Suspect]
     Active Substance: FENTANYL
     Indication: Drug abuse
     Route: 065
  4. METHADONE [Suspect]
     Active Substance: METHADONE HYDROCHLORIDE
     Indication: Drug use disorder
     Route: 065
  5. METHAMPHETAMINE [Suspect]
     Active Substance: METHAMPHETAMINE
     Indication: Drug use disorder
     Route: 065
  6. BUPIVACAINE [Suspect]
     Active Substance: BUPIVACAINE
     Indication: Spinal anaesthesia
     Route: 065
  7. MORPHINE [Suspect]
     Active Substance: MORPHINE
     Indication: Spinal anaesthesia
     Route: 065

REACTIONS (4)
  - Drug abuse [Unknown]
  - Maternal use of illicit drugs [Unknown]
  - Maternal exposure during pregnancy [Unknown]
  - Off label use [Unknown]
